FAERS Safety Report 25463922 (Version 1)
Quarter: 2025Q2

REPORT INFORMATION
  Report Type: Report from Study
  Country: US (occurrence: US)
  Receive Date: 20250621
  Receipt Date: 20250621
  Transmission Date: 20250717
  Serious: Yes (Other)
  Sender: AMGEN
  Company Number: US-AMGEN-USASL2025116316

PATIENT
  Age: 70 Year
  Sex: Female

DRUGS (3)
  1. ENBREL [Suspect]
     Active Substance: ETANERCEPT
     Indication: Psoriatic arthropathy
     Dosage: 50 MILLIGRAM, QWK
     Route: 065
  2. ENBREL [Suspect]
     Active Substance: ETANERCEPT
  3. PROLIA [Suspect]
     Active Substance: DENOSUMAB
     Indication: Bone loss
     Dosage: UNK UNK, Q6MO
     Route: 065
     Dates: end: 202406

REACTIONS (3)
  - Psoriatic arthropathy [Unknown]
  - Bone loss [Unknown]
  - Therapy interrupted [Unknown]

NARRATIVE: CASE EVENT DATE: 20240601
